FAERS Safety Report 11179407 (Version 2)
Quarter: 2015Q3

REPORT INFORMATION
  Report Type: Spontaneous
  Country: JP (occurrence: JP)
  Receive Date: 20150611
  Receipt Date: 20150812
  Transmission Date: 20151125
  Serious: Yes (Other)
  Sender: FDA-Public Use
  Company Number: JP-009507513-1506JPN002131

PATIENT

DRUGS (2)
  1. PEGINTRON [Suspect]
     Active Substance: PEGINTERFERON ALFA-2B
     Indication: CHRONIC HEPATITIS C
     Dosage: ONCE WEEKLY AT A DOSAGE OF 60-150 MICROGRAM BASED ON BODY WEIGHT
     Route: 058
  2. REBETOL [Suspect]
     Active Substance: RIBAVIRIN
     Indication: CHRONIC HEPATITIS C
     Dosage: TWICE A DAY AT A TOTAL DOSE OF 600-1000MG/DAY BASED ON BODY WEIGHT
     Route: 048

REACTIONS (1)
  - Hepatocellular carcinoma [Unknown]
